FAERS Safety Report 16366616 (Version 1)
Quarter: 2019Q2

REPORT INFORMATION
  Report Type: Spontaneous
  Country: US (occurrence: US)
  Receive Date: 20190529
  Receipt Date: 20190529
  Transmission Date: 20190711
  Serious: No
  Sender: FDA-Public Use
  Company Number: US-KERYX BIOPHARMACEUTICALS INC.-2019US004746

PATIENT
  Sex: Male

DRUGS (3)
  1. AURYXIA [Suspect]
     Active Substance: TETRAFERRIC TRICITRATE DECAHYDRATE
     Indication: HYPERPHOSPHATAEMIA
     Dosage: UNK
     Route: 048
  2. DIURETICS [Concomitant]
     Active Substance: UNSPECIFIED INGREDIENT
  3. IRON [Concomitant]
     Active Substance: IRON
     Dosage: UNK
     Route: 042

REACTIONS (3)
  - Hypertension [Recovered/Resolved]
  - Fluid overload [Recovered/Resolved]
  - Hypersensitivity [Recovered/Resolved]
